FAERS Safety Report 7280474-1 (Version None)
Quarter: 2011Q1

REPORT INFORMATION
  Report Type: 
  Country: None (occurrence: None)
  Receive Date: 20110208
  Receipt Date: 20110207
  Transmission Date: 20110831
  Serious: Yes (Other)
  Sender: FDA-Public Use
  Company Number: JP-PFIZER INC-2011026508

PATIENT
  Sex: Male

DRUGS (1)
  1. SOLANAX [Suspect]
     Dosage: UNK

REACTIONS (3)
  - TREMOR [None]
  - MASKED FACIES [None]
  - COGWHEEL RIGIDITY [None]
